FAERS Safety Report 5950651-8 (Version None)
Quarter: 2008Q4

REPORT INFORMATION
  Report Type: 
  Country: None (occurrence: None)
  Receive Date: 20081112
  Receipt Date: 20081104
  Transmission Date: 20090506
  Serious: Yes (Other)
  Sender: FDA-Public Use
  Company Number: TR-ABBOTT-08P-161-0445078-00

PATIENT
  Age: 26 Year
  Sex: Female

DRUGS (1)
  1. REDUCTIL [Suspect]
     Indication: WEIGHT CONTROL
     Route: 048
     Dates: start: 20080101, end: 20080201

REACTIONS (3)
  - ABORTION INDUCED [None]
  - DRUG EXPOSURE DURING PREGNANCY [None]
  - PREGNANCY [None]
